FAERS Safety Report 7878595 (Version 2)
Quarter: 2012Q4

REPORT INFORMATION
  Report Type: 
  Country: VE (occurrence: VE)
  Receive Date: 20110330
  Receipt Date: 20121210
  Transmission Date: 20130627
  Serious: Yes (Other)
  Sender: FDA-Public Use
  Company Number: PHHY2011VE21197

PATIENT
  Sex: Male

DRUGS (1)
  1. DIOVAN [Suspect]
     Indication: HYPERTENSION
     Dosage: once a day
     Route: 048
     Dates: start: 2006, end: 201207

REACTIONS (3)
  - Laryngeal cancer [Recovering/Resolving]
  - Laryngeal injury [Unknown]
  - Hypertension [Recovered/Resolved]
